FAERS Safety Report 13118487 (Version 1)
Quarter: 2017Q1

REPORT INFORMATION
  Report Type: Spontaneous
  Country: IT (occurrence: IT)
  Receive Date: 20170116
  Receipt Date: 20170116
  Transmission Date: 20170428
  Serious: Yes (Hospitalization)
  Sender: FDA-Public Use
  Company Number: IT-SA-2017SA004363

PATIENT
  Age: 58 Year
  Sex: Male

DRUGS (7)
  1. ZOMETA [Suspect]
     Active Substance: ZOLEDRONIC ACID
     Indication: NEUROENDOCRINE CARCINOMA METASTATIC
     Route: 042
     Dates: start: 20150604, end: 20150604
  2. CARBOPLATIN. [Concomitant]
     Active Substance: CARBOPLATIN
     Indication: NEUROENDOCRINE CARCINOMA METASTATIC
     Dosage: 120 MG PER SQUARE METER OF BODY SURFACE
     Route: 065
     Dates: start: 20130926, end: 20150915
  3. CAELYX [Concomitant]
     Active Substance: DOXORUBICIN HYDROCHLORIDE
     Indication: NEUROENDOCRINE CARCINOMA METASTATIC
     Dosage: 25 MG PER SQUARE METER OF BODY SURFACE
     Route: 042
     Dates: start: 20151218, end: 20160414
  4. TAXOTERE [Suspect]
     Active Substance: DOCETAXEL
     Indication: NEUROENDOCRINE CARCINOMA METASTATIC
     Dosage: 60 MG PER SQUARE METER OF BODY SURFACE, CYCLIC
     Route: 042
     Dates: start: 20151218, end: 20151218
  5. TAXOTERE [Suspect]
     Active Substance: DOCETAXEL
     Indication: NEUROENDOCRINE CARCINOMA METASTATIC
     Dosage: 60 MG PER SQUARE METER OF BODY SURFACE, CYCLIC
     Route: 042
     Dates: start: 20151124, end: 20151124
  6. ZOMETA [Suspect]
     Active Substance: ZOLEDRONIC ACID
     Indication: NEUROENDOCRINE CARCINOMA METASTATIC
     Route: 042
     Dates: start: 20160523, end: 20160523
  7. IPSTYL [Concomitant]
     Active Substance: LANREOTIDE ACETATE
     Indication: NEUROENDOCRINE CARCINOMA METASTATIC
     Route: 030
     Dates: start: 20130523, end: 20160404

REACTIONS (1)
  - Osteitis [Not Recovered/Not Resolved]

NARRATIVE: CASE EVENT DATE: 20160504
